FAERS Safety Report 11170301 (Version 1)
Quarter: 2015Q2

REPORT INFORMATION
  Report Type: Spontaneous
  Country: FR (occurrence: None)
  Receive Date: 20150604
  Receipt Date: 20150604
  Transmission Date: 20150821
  Serious: Yes (Other)
  Sender: FDA-Public Use
  Company Number: B0638220A

PATIENT
  Age: 68 Year
  Sex: Female
  Weight: 47 kg

DRUGS (5)
  1. NORVIR [Suspect]
     Active Substance: RITONAVIR
     Indication: HIV INFECTION
     Dosage: 100 MG, 1D, ORAL
     Route: 048
     Dates: start: 20091007, end: 20150203
  2. VOGALENE [Suspect]
     Active Substance: METOPIMAZINE
     Indication: NAUSEA
     Dosage: , 1S, ORAL
     Route: 048
     Dates: start: 20091013, end: 20091013
  3. PREZISTA [Suspect]
     Active Substance: DARUNAVIR ETHANOLATE
     Indication: HIV INFECTION
     Dates: end: 20150203
  4. REYATAZ [Suspect]
     Active Substance: ATAZANAVIR SULFATE
     Indication: HIV INFECTION
     Dosage: 300 MG, 1D, ORAL
     Route: 048
     Dates: start: 20091007, end: 20091014
  5. KIVEXA [Suspect]
     Active Substance: ABACAVIR SULFATE\LAMIVUDINE
     Indication: HIV INFECTION
     Dosage: 1 TABLET, 1D, ORAL
     Route: 048
     Dates: start: 20091007, end: 20091014

REACTIONS (8)
  - Face oedema [None]
  - Lip swelling [None]
  - Livedo reticularis [None]
  - Angioedema [None]
  - Blood pressure increased [None]
  - Nausea [None]
  - Pruritus [None]
  - Palmar erythema [None]

NARRATIVE: CASE EVENT DATE: 20091007
